FAERS Safety Report 8044360-1 (Version None)
Quarter: 2011Q4

REPORT INFORMATION
  Report Type: 
  Country: None (occurrence: None)
  Receive Date: 20111202
  Receipt Date: 20101117
  Transmission Date: 20120403
  Serious: Yes (Other)
  Sender: FDA-Public Use
  Company Number: 2010SP060919

PATIENT
  Age: 50 Year
  Sex: Female
  Weight: 61.2356 kg

DRUGS (1)
  1. NUVARING [Suspect]
     Indication: CONTRACEPTION
     Dosage: 0.12 MG; VAG
     Route: 067
     Dates: end: 20101112

REACTIONS (3)
  - INCORRECT DRUG ADMINISTRATION DURATION [None]
  - HYPERTENSION [None]
  - HEADACHE [None]
